FAERS Safety Report 7222785-1 (Version None)
Quarter: 2011Q1

REPORT INFORMATION
  Report Type: 
  Country: None (occurrence: None)
  Receive Date: 20110106
  Receipt Date: 20110106
  Transmission Date: 20110831
  Serious: Yes (Hospitalization)
  Sender: FDA-Public Use
  Company Number: None

PATIENT
  Age: 83 Year
  Sex: Male
  Weight: 79 kg

DRUGS (15)
  1. ASPIRIN [Concomitant]
  2. ZOLOFT [Concomitant]
  3. LASIX [Concomitant]
  4. PLAVIX [Concomitant]
  5. MIRALAX [Concomitant]
  6. RESTORIL [Suspect]
     Indication: INSOMNIA
     Dosage: 15MG QHS PO RECENT
     Route: 048
  7. COREG [Concomitant]
  8. ZYPREXA [Concomitant]
  9. ZANTAC [Concomitant]
  10. M.V.I. [Concomitant]
  11. LISINOPRIL [Suspect]
     Indication: HYPERTENSION
     Dosage: 10MG DAILY PO CHRONIC
     Route: 048
  12. ZESTORIL [Concomitant]
  13. GLIPIZIDE [Concomitant]
  14. PRAVASTATIN [Concomitant]
  15. VIT D [Concomitant]

REACTIONS (5)
  - FALL [None]
  - SOMNOLENCE [None]
  - DELIRIUM [None]
  - COUGH [None]
  - MENTAL STATUS CHANGES [None]
